FAERS Safety Report 23711726 (Version 1)
Quarter: 2024Q2

REPORT INFORMATION
  Report Type: Spontaneous
  Country: CN (occurrence: None)
  Receive Date: 20240405
  Receipt Date: 20240405
  Transmission Date: 20240715
  Serious: Yes (Other)
  Sender: FDA-Public Use
  Company Number: 2024A078364

PATIENT
  Sex: Female
  Weight: 60 kg

DRUGS (8)
  1. PULMICORT RESPULES [Suspect]
     Active Substance: BUDESONIDE
     Indication: Bronchitis chronic
     Route: 055
     Dates: start: 20210129, end: 20210130
  2. AZITHROMYCIN [Concomitant]
     Active Substance: AZITHROMYCIN
  3. SODIUM CHLORIDE [Concomitant]
     Active Substance: SODIUM CHLORIDE
  4. STERILE WATER [Concomitant]
     Active Substance: WATER
  5. TERBUTALINE SULFATE [Concomitant]
     Active Substance: TERBUTALINE SULFATE
  6. POTASSIUM SODIUM DEHYDROANDROANDROGRAPHOLIDE SUCCINATE [Concomitant]
  7. DEXTROSE [Concomitant]
     Active Substance: DEXTROSE\DEXTROSE MONOHYDRATE
     Dosage: 250 ML IVGTT
  8. DEXAMETHASONE [Concomitant]
     Active Substance: DEXAMETHASONE

REACTIONS (4)
  - Palpitations [Recovering/Resolving]
  - Chest discomfort [Recovering/Resolving]
  - Dyspnoea [Recovering/Resolving]
  - Dyskinesia [Recovering/Resolving]

NARRATIVE: CASE EVENT DATE: 20210129
